FAERS Safety Report 24775737 (Version 1)
Quarter: 2024Q4

REPORT INFORMATION
  Report Type: Spontaneous
  Country: IT (occurrence: IT)
  Receive Date: 20241226
  Receipt Date: 20241226
  Transmission Date: 20250115
  Serious: Yes (Other)
  Sender: AMGEN
  Company Number: IT-AMGEN-ITASP2024250734

PATIENT

DRUGS (1)
  1. ADALIMUMAB [Suspect]
     Active Substance: ADALIMUMAB
     Indication: Uveitis
     Dosage: UNK
     Route: 065

REACTIONS (18)
  - Iris adhesions [Unknown]
  - Cystoid macular oedema [Unknown]
  - Facial paralysis [Unknown]
  - Thrombosis [Unknown]
  - Uveitis [Unknown]
  - Pseudopapilloedema [Unknown]
  - Epiretinal membrane [Unknown]
  - Keratopathy [Unknown]
  - Eye disorder [Unknown]
  - Retinal scar [Unknown]
  - Mouth ulceration [Unknown]
  - Genital ulceration [Unknown]
  - Gastrointestinal disorder [Unknown]
  - Erythema nodosum [Unknown]
  - Nervous system disorder [Unknown]
  - Arthralgia [Unknown]
  - Rash [Unknown]
  - Pyrexia [Unknown]
